FAERS Safety Report 13648387 (Version 1)
Quarter: 2017Q2

REPORT INFORMATION
  Report Type: Report from Study
  Country: DE (occurrence: DE)
  Receive Date: 20170613
  Receipt Date: 20170613
  Transmission Date: 20170830
  Serious: Yes (Death)
  Sender: FDA-Public Use
  Company Number: DE-DRREDDYS-GER/GER/17/0091284

PATIENT
  Sex: Male
  Weight: 85 kg

DRUGS (3)
  1. TRENANTONE [Concomitant]
     Active Substance: LEUPROLIDE ACETATE
     Indication: PROSTATE CANCER
     Route: 058
     Dates: start: 201412, end: 201503
  2. ZOLEDRONS?URE BETA 4 MG/5 ML KONZENTRAT ZUR HERSTELLUNG EINER INFUSION [Suspect]
     Active Substance: ZOLEDRONIC ACID
     Indication: METASTASES TO BONE
     Route: 042
     Dates: start: 201406, end: 201503
  3. NOVAMINSULFON [Concomitant]
     Active Substance: METAMIZOLE
     Indication: PROSTATIC PAIN
     Route: 048
     Dates: start: 201502, end: 201503

REACTIONS (1)
  - Death [Fatal]
